FAERS Safety Report 9677741 (Version 1)
Quarter: 2013Q4

REPORT INFORMATION
  Report Type: Spontaneous
  Country: BR (occurrence: BR)
  Receive Date: 20131108
  Receipt Date: 20131108
  Transmission Date: 20140711
  Serious: Yes (Hospitalization, Other)
  Sender: FDA-Public Use
  Company Number: BR-JNJFOC-20131101538

PATIENT
  Sex: Male
  Weight: 88 kg

DRUGS (2)
  1. HALDOL [Suspect]
     Indication: SCHIZOPHRENIA
     Route: 065
     Dates: start: 2009
  2. MELLERETTEN [Concomitant]
     Indication: SCHIZOPHRENIA
     Route: 065

REACTIONS (10)
  - Parkinsonism [Unknown]
  - Investigation [Recovered/Resolved]
  - Insomnia [Unknown]
  - Abdominal distension [Unknown]
  - Dizziness [Unknown]
  - Nervousness [Unknown]
  - Pyrexia [Unknown]
  - Headache [Unknown]
  - Emotional distress [Not Recovered/Not Resolved]
  - Wrong technique in drug usage process [Unknown]
